FAERS Safety Report 26062100 (Version 1)
Quarter: 2025Q4

REPORT INFORMATION
  Report Type: Spontaneous
  Country: GB (occurrence: None)
  Receive Date: 20251119
  Receipt Date: 20251119
  Transmission Date: 20260118
  Serious: Yes (Hospitalization, Other)
  Sender: ENCUBE ETHICALS PVT. LTD.
  Company Number: GB-Encube-002607

PATIENT
  Age: 86 Year
  Sex: Female

DRUGS (25)
  1. FLUOROURACIL [Suspect]
     Active Substance: FLUOROURACIL
     Indication: Adenocarcinoma gastric
     Dosage: BOLUS
     Dates: start: 202501
  2. LEUCOVORIN [Suspect]
     Active Substance: LEUCOVORIN\LEUCOVORIN CALCIUM
     Indication: Adenocarcinoma gastric
     Dosage: FIRST TWO CYCLES WERE WELL TOLERATED
     Dates: start: 202501
  3. OXALIPLATIN [Suspect]
     Active Substance: OXALIPLATIN
     Indication: Adenocarcinoma gastric
     Dosage: FIRST TWO CYCLES WERE WELL TOLERATED
     Dates: start: 202501
  4. NIVOLUMAB [Suspect]
     Active Substance: NIVOLUMAB
     Indication: Adenocarcinoma gastric
     Dosage: FIRST TWO CYCLES WERE WELL TOLERATED
     Dates: start: 202501
  5. TINZAPARIN [Concomitant]
     Active Substance: TINZAPARIN
     Indication: Pulmonary embolism
     Dosage: TREATMENT-DOSE INJECTIONS
  6. MORPHINE SULFATE [Concomitant]
     Active Substance: MORPHINE SULFATE
  7. OMEPRAZOLE [Concomitant]
     Active Substance: OMEPRAZOLE
  8. AMLODIPINE [Concomitant]
     Active Substance: AMLODIPINE BESYLATE
  9. DIHYDROCODEINE [Concomitant]
     Active Substance: DIHYDROCODEINE
  10. BECLOMETHASONE DIPROPIONATE [Concomitant]
     Active Substance: BECLOMETHASONE DIPROPIONATE
  11. DEXAMETHASONE [Concomitant]
     Active Substance: DEXAMETHASONE
  12. FLUOROURACIL [Suspect]
     Active Substance: FLUOROURACIL
     Indication: Adenocarcinoma gastric
     Dosage: BOLUS; THIRD CYCLE
     Dates: start: 202502
  13. LEUCOVORIN [Suspect]
     Active Substance: LEUCOVORIN\LEUCOVORIN CALCIUM
     Indication: Adenocarcinoma gastric
     Dosage: THIRD CYCLE
     Dates: start: 202502
  14. OXALIPLATIN [Suspect]
     Active Substance: OXALIPLATIN
     Indication: Adenocarcinoma gastric
     Dosage: THIRD CYCLE
     Dates: start: 202502
  15. NIVOLUMAB [Suspect]
     Active Substance: NIVOLUMAB
     Indication: Adenocarcinoma gastric
     Dosage: THIRD CYCLE
     Dates: start: 202502
  16. FLUOROURACIL [Suspect]
     Active Substance: FLUOROURACIL
     Indication: Adenocarcinoma gastric
     Dosage: REDUCED DOSE WITH 5-FU BOLUS OMITTED IN CYCLE 4
     Dates: start: 202503
  17. LEUCOVORIN [Suspect]
     Active Substance: LEUCOVORIN\LEUCOVORIN CALCIUM
     Indication: Adenocarcinoma gastric
     Dosage: REDUCED DOSE WITH 5-FU BOLUS OMITTED IN CYCLE 4
     Dates: start: 202503
  18. OXALIPLATIN [Suspect]
     Active Substance: OXALIPLATIN
     Indication: Adenocarcinoma gastric
     Dosage: REDUCED DOSE WITH 5-FU BOLUS OMITTED IN CYCLE 4
     Dates: start: 202503
  19. NIVOLUMAB [Suspect]
     Active Substance: NIVOLUMAB
     Indication: Adenocarcinoma gastric
     Dosage: REDUCED DOSE IN CYCLE 4
     Dates: start: 202503, end: 202503
  20. FLUOROURACIL [Suspect]
     Active Substance: FLUOROURACIL
     Indication: Adenocarcinoma gastric
     Dosage: CYCLES 5 AND 6 WERE SAFELY ADMINISTERED
     Dates: start: 202504
  21. LEUCOVORIN [Suspect]
     Active Substance: LEUCOVORIN\LEUCOVORIN CALCIUM
     Indication: Adenocarcinoma gastric
     Dosage: CYCLES 5 AND 6 WERE SAFELY ADMINISTERED
     Dates: start: 202504
  22. OXALIPLATIN [Suspect]
     Active Substance: OXALIPLATIN
     Indication: Adenocarcinoma gastric
     Dosage: CYCLES 5 AND 6 WERE SAFELY ADMINISTERED
     Dates: start: 202504
  23. FLUOROURACIL [Suspect]
     Active Substance: FLUOROURACIL
     Indication: Adenocarcinoma gastric
     Dosage: REDUCED DOSE
     Dates: start: 202506, end: 202506
  24. LEUCOVORIN [Suspect]
     Active Substance: LEUCOVORIN\LEUCOVORIN CALCIUM
     Indication: Adenocarcinoma gastric
     Dosage: REDUCED DOSE
     Dates: start: 202506, end: 202506
  25. OXALIPLATIN [Suspect]
     Active Substance: OXALIPLATIN
     Indication: Adenocarcinoma gastric
     Dosage: REDUCED DOSE
     Dates: start: 202506, end: 202506

REACTIONS (5)
  - Cytokine release syndrome [Unknown]
  - Off label use [Unknown]
  - Toxicity to various agents [Unknown]
  - Stomatitis [Unknown]
  - Neutropenia [Unknown]

NARRATIVE: CASE EVENT DATE: 20250101
